FAERS Safety Report 13362457 (Version 1)
Quarter: 2017Q1

REPORT INFORMATION
  Report Type: Spontaneous
  Country: US (occurrence: US)
  Receive Date: 20170323
  Receipt Date: 20170323
  Transmission Date: 20170429
  Serious: Yes (Other)
  Sender: FDA-Public Use
  Company Number: US-APOTEX-2017AP008397

PATIENT
  Age: 82 Year
  Sex: Female

DRUGS (1)
  1. GABAPENTIN. [Suspect]
     Active Substance: GABAPENTIN
     Indication: NEURALGIA
     Dosage: 900 MG, UNK, PER DAY
     Route: 065

REACTIONS (6)
  - Dysarthria [Recovered/Resolved]
  - Myalgia [Recovered/Resolved]
  - Fatigue [Recovered/Resolved]
  - Creatinine renal clearance decreased [Recovered/Resolved]
  - Toxicity to various agents [Recovered/Resolved]
  - Blood creatinine increased [Recovered/Resolved]
